FAERS Safety Report 12807775 (Version 1)
Quarter: 2016Q4

REPORT INFORMATION
  Report Type: Spontaneous
  Country: US (occurrence: US)
  Receive Date: 20161004
  Receipt Date: 20161004
  Transmission Date: 20170207
  Serious: No
  Sender: FDA-Public Use
  Company Number: US-ASTRAZENECA-2016SE94048

PATIENT
  Age: 3486 Week
  Sex: Female
  Weight: 76.7 kg

DRUGS (17)
  1. OMEPRAZOLE. [Suspect]
     Active Substance: OMEPRAZOLE
     Indication: ABDOMINAL DISCOMFORT
     Route: 048
  2. B12 COMPLEX [Concomitant]
     Indication: THYROID DISORDER
     Dosage: DAILY
     Route: 048
     Dates: start: 2008
  3. IRON [Concomitant]
     Active Substance: IRON
     Indication: ANAEMIA
     Route: 048
     Dates: start: 2012
  4. CHLORTALIDONE [Concomitant]
     Active Substance: CHLORTHALIDONE
     Indication: INFLAMMATION
     Route: 048
     Dates: start: 2008
  5. IRBESARTAN. [Concomitant]
     Active Substance: IRBESARTAN
     Indication: HYPERTENSION
     Route: 048
     Dates: start: 2014
  6. BIOTIN [Concomitant]
     Active Substance: BIOTIN
     Indication: SKIN DISORDER
     Dosage: DAILY
     Route: 048
     Dates: start: 2016
  7. BIOTIN [Concomitant]
     Active Substance: BIOTIN
     Indication: HAIR DISORDER
     Dosage: DAILY
     Route: 048
     Dates: start: 2016
  8. LEVOXYL [Concomitant]
     Active Substance: LEVOTHYROXINE SODIUM
     Indication: THYROID DISORDER
     Route: 048
     Dates: start: 2005
  9. ATORVASTATIN [Concomitant]
     Active Substance: ATORVASTATIN
     Indication: BLOOD CHOLESTEROL ABNORMAL
     Route: 048
     Dates: start: 2014
  10. BABY ASPIRIN [Concomitant]
     Active Substance: ASPIRIN
     Indication: CARDIAC DISORDER
     Route: 048
  11. VITAMIN D3 [Concomitant]
     Active Substance: CHOLECALCIFEROL
     Indication: BONE DISORDER
     Route: 048
     Dates: start: 2005
  12. BYDUREON [Suspect]
     Active Substance: EXENATIDE
     Indication: BLOOD GLUCOSE INCREASED
     Route: 058
     Dates: start: 20160813
  13. COQ10 [Concomitant]
     Active Substance: UBIDECARENONE
     Indication: CARDIAC DISORDER
     Route: 048
     Dates: start: 2016
  14. METFORMIN [Concomitant]
     Active Substance: METFORMIN HYDROCHLORIDE
     Indication: BLOOD GLUCOSE INCREASED
     Route: 048
     Dates: start: 2005
  15. GLIPERIDE [Concomitant]
     Active Substance: GLIMEPIRIDE
     Indication: BLOOD GLUCOSE INCREASED
     Route: 048
  16. B12 COMPLEX [Concomitant]
     Indication: SKIN DISORDER
     Dosage: DAILY
     Route: 048
     Dates: start: 2008
  17. B12 COMPLEX [Concomitant]
     Indication: HAIR DISORDER
     Dosage: DAILY
     Route: 048
     Dates: start: 2008

REACTIONS (11)
  - Peripheral coldness [Unknown]
  - Gait disturbance [Unknown]
  - Asthenia [Unknown]
  - Body height decreased [Unknown]
  - Fatigue [Unknown]
  - Pain in extremity [Unknown]
  - Blood glucose increased [Unknown]
  - Somnolence [Unknown]
  - Feeling hot [Unknown]
  - Product quality issue [Unknown]
  - Blister [Unknown]

NARRATIVE: CASE EVENT DATE: 20160813
